FAERS Safety Report 7272540-1 (Version None)
Quarter: 2011Q1

REPORT INFORMATION
  Report Type: 
  Country: None (occurrence: None)
  Receive Date: 20110203
  Receipt Date: 20110128
  Transmission Date: 20110831
  Serious: Yes (Death, Hospitalization)
  Sender: FDA-Public Use
  Company Number: ES-ROCHE-756474

PATIENT
  Sex: Male
  Weight: 71 kg

DRUGS (4)
  1. OXALIPLATIN [Suspect]
     Indication: COLORECTAL CANCER
     Dosage: FORM: INFUSION
     Route: 042
     Dates: start: 20101215, end: 20110105
  2. BEVACIZUMAB [Suspect]
     Indication: COLORECTAL CANCER
     Dosage: INFUSION: FORM
     Route: 042
     Dates: start: 20101215, end: 20110105
  3. CAPECITABINE [Suspect]
     Indication: COLORECTAL CANCER
     Route: 048
     Dates: start: 20101215, end: 20110113
  4. LOSARTAN POTASSIUM [Concomitant]

REACTIONS (1)
  - HYPOVOLAEMIC SHOCK [None]
